FAERS Safety Report 25021448 (Version 2)
Quarter: 2025Q2

REPORT INFORMATION
  Report Type: Report from Study
  Country: CA (occurrence: CA)
  Receive Date: 20250228
  Receipt Date: 20250422
  Transmission Date: 20250716
  Serious: No
  Sender: JAZZ
  Company Number: CA-JAZZ PHARMACEUTICALS-2025-CA-005128

PATIENT
  Sex: Male

DRUGS (2)
  1. EPIDIOLEX [Suspect]
     Active Substance: CANNABIDIOL
     Indication: Severe myoclonic epilepsy of infancy
     Dosage: 0.6 MILLILITER, BID
  2. CLOBAZAM [Concomitant]
     Active Substance: CLOBAZAM

REACTIONS (1)
  - Drug ineffective [Unknown]
